FAERS Safety Report 9382938 (Version 1)
Quarter: 2013Q3

REPORT INFORMATION
  Report Type: Report from Study
  Country: US (occurrence: US)
  Receive Date: 20130703
  Receipt Date: 20130703
  Transmission Date: 20140515
  Serious: Yes (Other)
  Sender: FDA-Public Use
  Company Number: US-ABBOTT-13P-163-1111220-00

PATIENT
  Age: 58 Year
  Sex: Female

DRUGS (3)
  1. HUMIRA [Suspect]
     Indication: PSORIASIS
     Dates: end: 20130605
  2. LEVOTHYROXINE [Concomitant]
     Indication: HYPOTHYROIDISM
  3. SIMVASTATIN [Concomitant]
     Indication: BLOOD CHOLESTEROL INCREASED

REACTIONS (4)
  - Haemangioma of liver [Not Recovered/Not Resolved]
  - Vomiting [Unknown]
  - Hepatic enzyme increased [Unknown]
  - Fatigue [Unknown]
